FAERS Safety Report 17071449 (Version 1)
Quarter: 2019Q4

REPORT INFORMATION
  Report Type: Spontaneous
  Country: US (occurrence: US)
  Receive Date: 20191125
  Receipt Date: 20191125
  Transmission Date: 20200122
  Serious: No
  Sender: FDA-Public Use
  Company Number: US-ROCHE-2342738

PATIENT
  Sex: Female
  Weight: 48.5 kg

DRUGS (6)
  1. CARBIDOPA/LEVODOPA [Concomitant]
     Active Substance: CARBIDOPA\LEVODOPA
  2. FLAXSEED [Concomitant]
     Active Substance: FLAX SEED
  3. TAMIFLU [Suspect]
     Active Substance: OSELTAMIVIR PHOSPHATE
     Indication: INFLUENZA
     Route: 048
     Dates: start: 201904, end: 201904
  4. SELEGILINE [Concomitant]
     Active Substance: SELEGILINE
  5. SINEMET [Concomitant]
     Active Substance: CARBIDOPA\LEVODOPA
  6. ROPINIROLE HYDROCHLORIDE. [Concomitant]
     Active Substance: ROPINIROLE HYDROCHLORIDE

REACTIONS (6)
  - Influenza [Unknown]
  - Skin discolouration [Not Recovered/Not Resolved]
  - Dyskinesia [Recovered/Resolved]
  - Dry eye [Unknown]
  - Dehydration [Unknown]
  - Drug interaction [Unknown]
